FAERS Safety Report 14781508 (Version 1)
Quarter: 2018Q2

REPORT INFORMATION
  Report Type: Spontaneous
  Country: SE (occurrence: SE)
  Receive Date: 20180419
  Receipt Date: 20180419
  Transmission Date: 20180711
  Serious: Yes (Hospitalization)
  Sender: FDA-Public Use
  Company Number: SE-MERCK KGAA-2046099

PATIENT
  Age: 46 Year
  Sex: Female
  Weight: 75 kg

DRUGS (4)
  1. LIOTHYRONIN [Suspect]
     Active Substance: LIOTHYRONINE SODIUM
     Dates: start: 2017
  2. LEVAXIN [Suspect]
     Active Substance: LEVOTHYROXINE SODIUM
     Dates: start: 20160201
  3. NOVOTHYROX [Suspect]
     Active Substance: LEVOTHYROXINE SODIUM
     Indication: POST PROCEDURAL HYPOTHYROIDISM
     Dates: start: 2016
  4. LIOTHYRONIN [Suspect]
     Active Substance: LIOTHYRONINE SODIUM

REACTIONS (3)
  - Malaise [Not Recovered/Not Resolved]
  - Dyspnoea [Not Recovered/Not Resolved]
  - Hypersensitivity [Not Recovered/Not Resolved]

NARRATIVE: CASE EVENT DATE: 20160801
